FAERS Safety Report 8363295-8 (Version None)
Quarter: 2012Q2

REPORT INFORMATION
  Report Type: 
  Country: None (occurrence: None)
  Receive Date: 20120516
  Receipt Date: 20120502
  Transmission Date: 20120825
  Serious: No
  Sender: FDA-Public Use
  Company Number: US-JNJFOC-20120504474

PATIENT
  Sex: Female
  Weight: 71.67 kg

DRUGS (3)
  1. INSULIN [Concomitant]
     Indication: DIABETES MELLITUS
     Route: 058
  2. FENTANYL-100 [Suspect]
     Route: 062
     Dates: start: 20120502
  3. FENTANYL-100 [Suspect]
     Indication: NEURALGIA
     Route: 062

REACTIONS (3)
  - DRUG ADMINISTERED AT INAPPROPRIATE SITE [None]
  - DRUG DISPENSING ERROR [None]
  - PRODUCT QUALITY ISSUE [None]
